FAERS Safety Report 25894209 (Version 2)
Quarter: 2025Q4

REPORT INFORMATION
  Report Type: Report from Study
  Country: CA (occurrence: CA)
  Receive Date: 20251008
  Receipt Date: 20251105
  Transmission Date: 20260117
  Serious: Yes (Other)
  Sender: ABBVIE
  Company Number: CA-ABBVIE-6493225

PATIENT
  Age: 53 Year
  Sex: Female

DRUGS (1)
  1. SKYRIZI [Suspect]
     Active Substance: RISANKIZUMAB-RZAA
     Indication: Crohn^s disease
     Dosage: FORM STRENGTH: 600 MG INTRAVENOUS X 3 Q4 WEEKS THEN 360 MG SUBCUTANEOUS Q 8 WEEKS
     Route: 042
     Dates: start: 20250807

REACTIONS (10)
  - Breast neoplasm [Unknown]
  - Pyrexia [Recovered/Resolved]
  - Urinary tract infection [Recovering/Resolving]
  - SARS-CoV-2 test positive [Recovering/Resolving]
  - Cough [Unknown]
  - Acne [Recovering/Resolving]
  - Peripheral swelling [Unknown]
  - Pyrexia [Recovered/Resolved]
  - Pain in extremity [Recovered/Resolved]
  - Erythema [Recovered/Resolved]

NARRATIVE: CASE EVENT DATE: 20250101
